FAERS Safety Report 7582762-8 (Version None)
Quarter: 2011Q2

REPORT INFORMATION
  Report Type: 
  Country: None (occurrence: None)
  Receive Date: 20110630
  Receipt Date: 20110623
  Transmission Date: 20111010
  Serious: Yes (Other)
  Sender: FDA-Public Use
  Company Number: JP-PFIZER INC-2011139350

PATIENT
  Age: 54 Year
  Sex: Male

DRUGS (3)
  1. XALATAN [Suspect]
     Indication: GLAUCOMA
     Dosage: 1 GTT, UNK
     Route: 047
     Dates: start: 20101216
  2. BESTRON [Concomitant]
     Dosage: 4 GTT DAILY
     Route: 047
     Dates: start: 20101216
  3. TRUSOPT [Concomitant]
     Dosage: 3 GTT DAILY
     Route: 047
     Dates: start: 20101216

REACTIONS (3)
  - ERYTHEMA OF EYELID [None]
  - FACE OEDEMA [None]
  - EYELID OEDEMA [None]
